FAERS Safety Report 5595890-3 (Version None)
Quarter: 2008Q1

REPORT INFORMATION
  Report Type: 
  Country: None (occurrence: None)
  Receive Date: 20080118
  Receipt Date: 20061219
  Transmission Date: 20080703
  Serious: No
  Sender: FDA-Public Use
  Company Number: US-BRISTOL-MYERS SQUIBB COMPANY-13617071

PATIENT
  Sex: Female

DRUGS (1)
  1. IFEX [Suspect]

REACTIONS (1)
  - ADVERSE EVENT [None]
